FAERS Safety Report 18530964 (Version 1)
Quarter: 2020Q4

REPORT INFORMATION
  Report Type: Spontaneous
  Country: US (occurrence: US)
  Receive Date: 20201121
  Receipt Date: 20201121
  Transmission Date: 20210114
  Serious: No
  Sender: FDA-Public Use
  Company Number: US-AMAG PHARMACEUTICALS, INC.-AMAG202003381

PATIENT
  Age: 68 Year
  Sex: Female
  Weight: 56.75 kg

DRUGS (1)
  1. VYLEESI [Suspect]
     Active Substance: BREMELANOTIDE ACETATE
     Indication: LIBIDO DECREASED
     Dosage: THE PATIENT HAS NOT STARTED THE MEDICATION AS OF YET
     Route: 058

REACTIONS (1)
  - Product prescribing error [Unknown]
